FAERS Safety Report 23688767 (Version 1)
Quarter: 2024Q1

REPORT INFORMATION
  Report Type: Spontaneous
  Country: US (occurrence: US)
  Receive Date: 20240329
  Receipt Date: 20240329
  Transmission Date: 20240409
  Serious: No
  Sender: FDA-Public Use
  Company Number: US-PHARMING-PHAUS2024000259

PATIENT

DRUGS (2)
  1. RUCONEST [Suspect]
     Active Substance: CONESTAT ALFA
     Indication: Hereditary angioedema
     Dosage: 4200 IU, EVERY THREE DAYS
     Route: 042
     Dates: start: 201808
  2. FIRAZYR [Concomitant]
     Active Substance: ICATIBANT ACETATE
     Indication: Product used for unknown indication

REACTIONS (2)
  - Condition aggravated [Unknown]
  - Intentional product use issue [Unknown]
